FAERS Safety Report 5888141-3 (Version None)
Quarter: 2008Q3

REPORT INFORMATION
  Report Type: 
  Country: None (occurrence: None)
  Receive Date: 20080916
  Receipt Date: 20080905
  Transmission Date: 20090109
  Serious: No
  Sender: FDA-Public Use
  Company Number: 2008BI019208

PATIENT
  Age: 39 Year
  Sex: Female

DRUGS (5)
  1. TYSABRI [Suspect]
     Dosage: IV; 300 MG; QM; IV
     Route: 042
     Dates: start: 20050218, end: 20050201
  2. TYSABRI [Suspect]
     Dosage: IV; 300 MG; QM; IV
     Route: 042
     Dates: start: 20060901, end: 20070730
  3. AVONEX [Concomitant]
  4. SLEEPING MEDICATION NOS [Concomitant]
  5. KLONOPIN [Concomitant]

REACTIONS (12)
  - ACCIDENT [None]
  - ARTHRALGIA [None]
  - ASTHENIA [None]
  - BACK PAIN [None]
  - DRUG INEFFECTIVE [None]
  - FALL [None]
  - GAIT DISTURBANCE [None]
  - HEADACHE [None]
  - MICTURITION URGENCY [None]
  - NECK PAIN [None]
  - POLLAKIURIA [None]
  - THINKING ABNORMAL [None]
